FAERS Safety Report 11251189 (Version 1)
Quarter: 2015Q3

REPORT INFORMATION
  Report Type: Spontaneous
  Country: US (occurrence: US)
  Receive Date: 20150708
  Receipt Date: 20150708
  Transmission Date: 20151125
  Serious: Yes (Other)
  Sender: FDA-Public Use
  Company Number: US-ELI_LILLY_AND_COMPANY-US201108005549

PATIENT
  Age: 86 Year
  Sex: Female
  Weight: 68.48 kg

DRUGS (7)
  1. LIPITOR [Concomitant]
     Active Substance: ATORVASTATIN CALCIUM
  2. ZETIA [Concomitant]
     Active Substance: EZETIMIBE
  3. VITAMIN B12 [Concomitant]
     Active Substance: CYANOCOBALAMIN
     Dosage: 1 MG, UNK
     Route: 030
     Dates: start: 20110330
  4. TOPROL XL [Concomitant]
     Active Substance: METOPROLOL SUCCINATE
  5. FOLIC ACID. [Concomitant]
     Active Substance: FOLIC ACID
     Dosage: 800 MG, QD
     Route: 030
     Dates: start: 20110330
  6. ALIMTA [Suspect]
     Active Substance: PEMETREXED DISODIUM
     Indication: OVARIAN CANCER
     Dosage: 500 MG/M2, EVERY 3 WEEKS
     Route: 042
     Dates: start: 20110406, end: 20110817
  7. GLUCOSAMINE [Concomitant]
     Active Substance: GLUCOSAMINE

REACTIONS (2)
  - Neoplasm progression [Unknown]
  - Off label use [Recovered/Resolved]

NARRATIVE: CASE EVENT DATE: 20110406
